FAERS Safety Report 23794773 (Version 1)
Quarter: 2024Q2

REPORT INFORMATION
  Report Type: Spontaneous
  Country: IT (occurrence: IT)
  Receive Date: 20240429
  Receipt Date: 20240429
  Transmission Date: 20240716
  Serious: Yes (Hospitalization, Other)
  Sender: FDA-Public Use
  Company Number: None

PATIENT
  Age: 46 Year
  Sex: Female

DRUGS (1)
  1. BACLOFEN [Suspect]
     Active Substance: BACLOFEN
     Indication: Spinal cord injury
     Dosage: 7 DOSAGE FORM (TAKEN 7 TABLETS IN A SINGLE ADMINISTRATION)
     Route: 048
     Dates: start: 20240408, end: 20240408

REACTIONS (3)
  - Toxicity to various agents [Unknown]
  - Clonus [Unknown]
  - Drug abuse [Unknown]

NARRATIVE: CASE EVENT DATE: 20240408
